FAERS Safety Report 6254993-0 (Version None)
Quarter: 2009Q2

REPORT INFORMATION
  Report Type: 
  Country: None (occurrence: None)
  Receive Date: 20090630
  Receipt Date: 20090619
  Transmission Date: 20091009
  Serious: Yes (Other)
  Sender: FDA-Public Use
  Company Number: 2009AP002499

PATIENT
  Age: 60 Year
  Sex: Male

DRUGS (1)
  1. PENTOXIFYLLINE [Suspect]
     Indication: CARDIOVASCULAR DISORDER
     Dosage: 400 MG;QD;PO
     Route: 048

REACTIONS (1)
  - HALLUCINATION, AUDITORY [None]
